FAERS Safety Report 5201982-0 (Version None)
Quarter: 2007Q1

REPORT INFORMATION
  Report Type: 
  Country: None (occurrence: None)
  Receive Date: 20070104
  Receipt Date: 20070104
  Transmission Date: 20070707
  Serious: Yes (Other)
  Sender: FDA-Public Use
  Company Number: None

PATIENT
  Age: 72 Year
  Sex: Female
  Weight: 53.8873 kg

DRUGS (1)
  1. JANUVIA [Suspect]
     Dosage: 100 MG PO QD
     Route: 048
     Dates: start: 20061215

REACTIONS (1)
  - UNEVALUABLE EVENT [None]
